FAERS Safety Report 10029294 (Version 2)
Quarter: 2014Q2

REPORT INFORMATION
  Report Type: Spontaneous
  Country: MX (occurrence: MX)
  Receive Date: 20140321
  Receipt Date: 20140408
  Transmission Date: 20141212
  Serious: Yes (Hospitalization, Other)
  Sender: FDA-Public Use
  Company Number: PHHY2014MX032727

PATIENT
  Age: 73 Year
  Sex: Female

DRUGS (3)
  1. EXFORGE [Suspect]
     Indication: HYPERTENSION
     Dosage: 1.5 DF(160/10MG), ONE TABLET DAILY IN THE MORNING AND HALF TABLET AT NIGHT OCCASIONALLY
     Route: 048
  2. KEFLEX//CEFALEXIN [Concomitant]
     Indication: INFECTION
     Dosage: 1 DF(500MG), Q8H
  3. VARIDASA [Concomitant]
     Indication: VEIN DISORDER
     Dosage: UNK UKN, Q8H

REACTIONS (7)
  - Foot fracture [Not Recovered/Not Resolved]
  - Diabetes mellitus [Not Recovered/Not Resolved]
  - Accident [Unknown]
  - Pain [Unknown]
  - Inflammation [Unknown]
  - Blood pressure increased [Recovered/Resolved]
  - Wrong technique in drug usage process [Not Recovered/Not Resolved]
